FAERS Safety Report 5207948-9 (Version None)
Quarter: 2007Q1

REPORT INFORMATION
  Report Type: 
  Country: None (occurrence: None)
  Receive Date: 20070115
  Receipt Date: 20070108
  Transmission Date: 20070707
  Serious: Yes (Death)
  Sender: FDA-Public Use
  Company Number: US-ELI_LILLY_AND_COMPANY-US200607002206

PATIENT
  Age: 72 Year
  Sex: Female
  Weight: 64.852 kg

DRUGS (5)
  1. ZYPREXA [Suspect]
     Dosage: 10 MG, 2/D
     Route: 048
     Dates: start: 19990101, end: 20000101
  2. ZYPREXA [Suspect]
     Dosage: 5 MG, UNK
     Dates: start: 20000101, end: 20010101
  3. ZYPREXA [Suspect]
     Dosage: 7.5 MG, UNK
     Dates: start: 20000101, end: 20010101
  4. ZYPREXA [Suspect]
     Dates: start: 20010101
  5. DIVALPROEX SODIUM [Concomitant]
     Dates: start: 20000101

REACTIONS (2)
  - DEATH [None]
  - DIABETES MELLITUS [None]
